FAERS Safety Report 18006958 (Version 1)
Quarter: 2020Q3

REPORT INFORMATION
  Report Type: Spontaneous
  Country: US (occurrence: US)
  Receive Date: 20200710
  Receipt Date: 20200710
  Transmission Date: 20201103
  Serious: No
  Sender: FDA-Public Use
  Company Number: None

PATIENT

DRUGS (2)
  1. IV ASCORBIC ACID [Suspect]
     Active Substance: ASCORBIC ACID
  2. TEST STRIPS [Suspect]
     Active Substance: DEVICE

REACTIONS (3)
  - Nonspecific reaction [None]
  - Hypoglycaemia [None]
  - Blood glucose false positive [None]
